FAERS Safety Report 22244165 (Version 1)
Quarter: 2023Q2

REPORT INFORMATION
  Report Type: Spontaneous
  Country: US (occurrence: None)
  Receive Date: 20230419
  Receipt Date: 20230419
  Transmission Date: 20230722
  Serious: Yes (Hospitalization, Disabling)
  Sender: FDA-Public Use
  Company Number: None

PATIENT
  Sex: Female
  Weight: 81.65 kg

DRUGS (17)
  1. ELIQUIS [Suspect]
     Active Substance: APIXABAN
     Indication: Anticoagulant therapy
     Dosage: FREQUENCY : TWICE A DAY;?
     Route: 048
     Dates: start: 20220723, end: 20220723
  2. ELIQUIS [Suspect]
     Active Substance: APIXABAN
     Indication: Cardiac failure
  3. PRADAXA [Suspect]
     Active Substance: DABIGATRAN ETEXILATE MESYLATE
     Dosage: FREQUENCY : TWICE A DAY;?
     Route: 048
  4. ALPRAZOLAM [Concomitant]
     Active Substance: ALPRAZOLAM
  5. ASPIRIN [Concomitant]
     Active Substance: ASPIRIN
  6. VITAMIN D3 [Concomitant]
     Active Substance: CHOLECALCIFEROL
  7. ETHACRYNIC ACID [Concomitant]
     Active Substance: ETHACRYNIC ACID
  8. FENTANYL TRANSDERMAL SYSTEM [Concomitant]
     Active Substance: FENTANYL
  9. ALLEGRA [Concomitant]
     Active Substance: FEXOFENADINE HYDROCHLORIDE
  10. LIDOCAINE [Concomitant]
     Active Substance: LIDOCAINE
  11. PROTONIX [Concomitant]
     Active Substance: PANTOPRAZOLE SODIUM
  12. LOSARTAN [Concomitant]
     Active Substance: LOSARTAN
  13. Promise Eye [Concomitant]
  14. Liquid Gold for Eye [Concomitant]
  15. POTASSIUM [Concomitant]
     Active Substance: POTASSIUM
  16. Fruit and vegetable pills [Concomitant]
  17. Water level [Concomitant]

REACTIONS (14)
  - Cerebrovascular accident [None]
  - Memory impairment [None]
  - Gingival blister [None]
  - Rash [None]
  - Scab [None]
  - Vision blurred [None]
  - Headache [None]
  - Facial pain [None]
  - Drug hypersensitivity [None]
  - Inability to afford medication [None]
  - Loss of consciousness [None]
  - Heart rate irregular [None]
  - Pruritus [None]
  - Alopecia [None]
